FAERS Safety Report 6893131-8 (Version None)
Quarter: 2010Q3

REPORT INFORMATION
  Report Type: 
  Country: None (occurrence: None)
  Receive Date: 20100731
  Receipt Date: 20090526
  Transmission Date: 20110219
  Serious: Yes (Other)
  Sender: FDA-Public Use
  Company Number: US-PFIZER INC-2007011678

PATIENT
  Sex: Female

DRUGS (1)
  1. NEURONTIN [Suspect]

REACTIONS (6)
  - AGGRESSION [None]
  - COUGH [None]
  - MENTAL DISORDER [None]
  - NEGLECT OF PERSONAL APPEARANCE [None]
  - PERSONALITY CHANGE [None]
  - WEIGHT DECREASED [None]
